FAERS Safety Report 11507101 (Version 1)
Quarter: 2015Q3

REPORT INFORMATION
  Report Type: Spontaneous
  Country: US (occurrence: None)
  Receive Date: 20150914
  Receipt Date: 20150914
  Transmission Date: 20151125
  Serious: Yes (Disabling)
  Sender: FDA-Public Use
  Company Number: None

PATIENT
  Age: 34 Year
  Sex: Female
  Weight: 54.43 kg

DRUGS (11)
  1. VITAMIN D [Concomitant]
     Active Substance: CHOLECALCIFEROL
  2. CALCIUM [Concomitant]
     Active Substance: CALCIUM
  3. LACTOBAC2-BIFIDOL [Concomitant]
  4. DILTIAZEM [Concomitant]
     Active Substance: DILTIAZEM
  5. LIDOCAINE (XYLOCAINE) [Concomitant]
  6. FOLIC ACID. [Concomitant]
     Active Substance: FOLIC ACID
  7. ZOLEDRONIC ACID [Suspect]
     Active Substance: ZOLEDRONIC ACID
     Indication: OSTEOPOROSIS
     Dosage: 2.5 MG, INTO A VEIN
  8. NYSTATIN (MUCOSTATIN) [Concomitant]
  9. TRIAMCINOLONE ACETONIDE (ARISTOCORT) [Concomitant]
  10. VITAMIN B12 [Concomitant]
     Active Substance: CYANOCOBALAMIN
  11. COLCHINE [Concomitant]
     Active Substance: COLCHICINE

REACTIONS (12)
  - Chills [None]
  - Heart rate increased [None]
  - Blister [None]
  - Respiratory tract infection [None]
  - Hyperhidrosis [None]
  - Blood pressure increased [None]
  - Impaired work ability [None]
  - Injection site pain [None]
  - Diarrhoea [None]
  - Urine ketone body present [None]
  - Acute phase reaction [None]
  - Pyrexia [None]

NARRATIVE: CASE EVENT DATE: 20150902
